FAERS Safety Report 23348337 (Version 1)
Quarter: 2023Q4

REPORT INFORMATION
  Report Type: Spontaneous
  Country: US (occurrence: US)
  Receive Date: 20231228
  Receipt Date: 20231228
  Transmission Date: 20240109
  Serious: No
  Sender: FDA-Public Use
  Company Number: US-BRISTOL-MYERS SQUIBB COMPANY-2023-189034

PATIENT
  Age: 79 Year
  Sex: Female
  Weight: 58.51 kg

DRUGS (1)
  1. REVLIMID [Suspect]
     Active Substance: LENALIDOMIDE
     Indication: Mantle cell lymphoma
     Dosage: 21D Q 28D
     Route: 048

REACTIONS (4)
  - Diarrhoea [Unknown]
  - Chromaturia [Unknown]
  - Night sweats [Unknown]
  - Pyrexia [Unknown]
